FAERS Safety Report 16077913 (Version 1)
Quarter: 2019Q1

REPORT INFORMATION
  Report Type: Spontaneous
  Country: US (occurrence: US)
  Receive Date: 20190315
  Receipt Date: 20190315
  Transmission Date: 20190418
  Serious: No
  Sender: FDA-Public Use
  Company Number: US-PFIZER INC-2019112172

PATIENT
  Age: 6 Year
  Sex: Female

DRUGS (1)
  1. EUCRISA [Suspect]
     Active Substance: CRISABOROLE
     Dosage: APPLY TO AFFECT AREA (EYELIDE) 2X/DAY
     Route: 061

REACTIONS (2)
  - Burning sensation [Unknown]
  - Product use issue [Unknown]
